FAERS Safety Report 19171902 (Version 1)
Quarter: 2021Q2

REPORT INFORMATION
  Report Type: Spontaneous
  Country: US (occurrence: US)
  Receive Date: 20210423
  Receipt Date: 20210423
  Transmission Date: 20210717
  Serious: Yes (Other)
  Sender: FDA-Public Use
  Company Number: US-BEH-2021130771

PATIENT
  Age: 44 Year
  Sex: Female

DRUGS (1)
  1. RIASTAP [Suspect]
     Active Substance: FIBRINOGEN HUMAN
     Indication: COAGULOPATHY
     Dosage: 2000 ? 2300 MILLIGRAMS, BIW
     Route: 065
     Dates: start: 202001

REACTIONS (1)
  - Central venous catheterisation [Unknown]

NARRATIVE: CASE EVENT DATE: 20210325
